FAERS Safety Report 10087306 (Version 1)
Quarter: 2014Q2

REPORT INFORMATION
  Report Type: Spontaneous
  Country: JP (occurrence: JP)
  Receive Date: 20140418
  Receipt Date: 20140418
  Transmission Date: 20141212
  Serious: No
  Sender: FDA-Public Use
  Company Number: JP-B.I. PHARMACEUTICALS,INC./RIDGEFIELD-2014-BI-17586NB

PATIENT
  Sex: 0

DRUGS (3)
  1. TRAZENTA [Suspect]
     Indication: PRODUCT USED FOR UNKNOWN INDICATION
     Route: 065
  2. CRESTOR [Concomitant]
     Route: 065
  3. PARIET [Concomitant]
     Route: 065

REACTIONS (1)
  - Stomatitis [Unknown]
